FAERS Safety Report 7345182-7 (Version None)
Quarter: 2011Q1

REPORT INFORMATION
  Report Type: 
  Country: None (occurrence: None)
  Receive Date: 20110310
  Receipt Date: 20110301
  Transmission Date: 20110831
  Serious: Yes (Hospitalization)
  Sender: FDA-Public Use
  Company Number: US-ASTRAZENECA-2011SE06643

PATIENT
  Age: 63 Year
  Sex: Female

DRUGS (1)
  1. SYMBICORT [Suspect]
     Dosage: 80/4.5 MCG, TWO PUFFS, TWO TIMES A DAY.
     Route: 055

REACTIONS (2)
  - KNEE ARTHROPLASTY [None]
  - DRUG DOSE OMISSION [None]
